FAERS Safety Report 7682563-6 (Version None)
Quarter: 2011Q3

REPORT INFORMATION
  Report Type: 
  Country: None (occurrence: None)
  Receive Date: 20110815
  Receipt Date: 20110805
  Transmission Date: 20111222
  Serious: Yes (Hospitalization)
  Sender: FDA-Public Use
  Company Number: US-ASTELLAS-2011US003866

PATIENT
  Sex: Female

DRUGS (1)
  1. ERLOTINIB HYDROCHLORIDE [Suspect]
     Indication: PANCREATIC CARCINOMA
     Dosage: 50 MG, UID/QD
     Route: 048
     Dates: start: 20110609

REACTIONS (3)
  - HOSPITALISATION [None]
  - RASH PRURITIC [None]
  - FATIGUE [None]
